FAERS Safety Report 4987259-7 (Version None)
Quarter: 2006Q2

REPORT INFORMATION
  Report Type: 
  Country: None (occurrence: None)
  Receive Date: 20060501
  Receipt Date: 20051025
  Transmission Date: 20061013
  Serious: Yes (Hospitalization, Disabling)
  Sender: FDA-Public Use
  Company Number: US-MERCK-0510USA09236

PATIENT
  Age: 43 Year
  Sex: Female
  Weight: 136 kg

DRUGS (7)
  1. VIOXX [Suspect]
     Indication: ARTHRITIS
     Route: 048
     Dates: start: 20001129, end: 20020315
  2. TOPROL-XL [Concomitant]
     Indication: HYPERTENSION
     Route: 065
     Dates: start: 20010501, end: 20020301
  3. VERAPAMIL MSD LP [Concomitant]
     Indication: HYPERTENSION
     Route: 065
     Dates: start: 20001129
  4. GLUCOPHAGE [Concomitant]
     Indication: DIABETES MELLITUS
     Route: 065
     Dates: start: 20010301, end: 20020301
  5. HYDRODIURIL [Concomitant]
     Indication: SWELLING
     Route: 065
     Dates: start: 20010101, end: 20050301
  6. ZANAFLEX [Concomitant]
     Indication: PAIN
     Route: 065
     Dates: start: 20001101, end: 20020801
  7. ACETAMINOPHEN AND PROPOXYPHENE NAPSYLATE [Concomitant]
     Indication: PAIN
     Route: 065
     Dates: start: 20010101, end: 20020201

REACTIONS (15)
  - ABDOMINAL PAIN LOWER [None]
  - ANXIETY [None]
  - BACTERIAL INFECTION [None]
  - CERVICITIS [None]
  - DEPRESSION [None]
  - DIZZINESS [None]
  - HYPOTHYROIDISM [None]
  - MENORRHAGIA [None]
  - MULTIPLE ALLERGIES [None]
  - OBESITY [None]
  - OVARIAN CYST [None]
  - PICKWICKIAN SYNDROME [None]
  - PULMONARY EMBOLISM [None]
  - RESPIRATORY DISTRESS [None]
  - SLEEP APNOEA SYNDROME [None]
